FAERS Safety Report 7129120-8 (Version None)
Quarter: 2010Q4

REPORT INFORMATION
  Report Type: 
  Country: None (occurrence: None)
  Receive Date: 20101130
  Receipt Date: 20101123
  Transmission Date: 20110411
  Serious: Yes (Hospitalization)
  Sender: FDA-Public Use
  Company Number: US-US-EMD SERONO, INC.-7029193

PATIENT
  Sex: Male

DRUGS (2)
  1. REBIF [Suspect]
     Indication: MULTIPLE SCLEROSIS
     Route: 058
     Dates: start: 20090504
  2. BYSTOLIC [Concomitant]
     Indication: HYPERTENSION

REACTIONS (5)
  - ANIMAL BITE [None]
  - CELLULITIS [None]
  - INJECTION SITE CELLULITIS [None]
  - SKIN LESION [None]
  - STAPHYLOCOCCAL INFECTION [None]
